FAERS Safety Report 25443156 (Version 1)
Quarter: 2025Q2

REPORT INFORMATION
  Report Type: Spontaneous
  Country: GB (occurrence: GB)
  Receive Date: 20250617
  Receipt Date: 20250617
  Transmission Date: 20250716
  Serious: Yes (Death, Life-Threatening, Disabling, Other)
  Sender: AUROBINDO
  Company Number: GB-MHRA-MED-202505191708119480-VFNPS

PATIENT
  Age: 72 Year
  Sex: Male
  Weight: 140 kg

DRUGS (1)
  1. CIPROFLOXACIN [Suspect]
     Active Substance: CIPROFLOXACIN
     Indication: Cellulitis
     Route: 065
     Dates: start: 20230101

REACTIONS (4)
  - Death [Fatal]
  - Tendon necrosis [Unknown]
  - Multiple organ dysfunction syndrome [Unknown]
  - Jaundice [Unknown]

NARRATIVE: CASE EVENT DATE: 20230101
